FAERS Safety Report 4704293-2 (Version None)
Quarter: 2005Q2

REPORT INFORMATION
  Report Type: 
  Country: None (occurrence: None)
  Receive Date: 20050630
  Receipt Date: 20050207
  Transmission Date: 20051028
  Serious: Yes (Other)
  Sender: FDA-Public Use
  Company Number: PHEH2005US01813

PATIENT
  Age: 53 Year
  Sex: Female

DRUGS (3)
  1. ZOMETA [Suspect]
     Indication: BREAST CANCER METASTATIC
     Dosage: 4MG Q3WK
     Route: 042
     Dates: start: 20020204, end: 20050401
  2. AREDIA [Suspect]
     Indication: BREAST CANCER METASTATIC
     Dosage: 90MG QMO
     Route: 042
     Dates: start: 19981119, end: 20011227
  3. DEXAMETHASONE [Concomitant]
     Dosage: 10MG  WEEKLY
     Dates: start: 19980301, end: 19980601

REACTIONS (5)
  - BONE DISORDER [None]
  - JAW DISORDER [None]
  - OSTEONECROSIS [None]
  - TOOTH EXTRACTION [None]
  - WOUND DEBRIDEMENT [None]
